FAERS Safety Report 21241729 (Version 2)
Quarter: 2022Q4

REPORT INFORMATION
  Report Type: Spontaneous
  Country: US (occurrence: US)
  Receive Date: 20220823
  Receipt Date: 20221124
  Transmission Date: 20230113
  Serious: Yes (Hospitalization)
  Sender: FDA-Public Use
  Company Number: US-JNJFOC-20220838141

PATIENT
  Age: 67 Year
  Sex: Female

DRUGS (1)
  1. DARZALEX FASPRO [Suspect]
     Active Substance: DARATUMUMAB\HYALURONIDASE-FIHJ
     Indication: Plasma cell myeloma
     Route: 058
     Dates: start: 20220817

REACTIONS (1)
  - Anaphylactic reaction [Not Recovered/Not Resolved]

NARRATIVE: CASE EVENT DATE: 20220817
